FAERS Safety Report 7705450-3 (Version None)
Quarter: 2011Q3

REPORT INFORMATION
  Report Type: 
  Country: None (occurrence: None)
  Receive Date: 20110823
  Receipt Date: 20110823
  Transmission Date: 20111222
  Serious: Yes (Other)
  Sender: FDA-Public Use
  Company Number: None

PATIENT
  Age: 87 Year
  Sex: Male
  Weight: 79.3795 kg

DRUGS (1)
  1. PRADAXA [Suspect]

REACTIONS (3)
  - EPISTAXIS [None]
  - DIZZINESS [None]
  - HAEMATOCHEZIA [None]
